FAERS Safety Report 10210665 (Version 1)
Quarter: 2014Q2

REPORT INFORMATION
  Report Type: Spontaneous
  Country: AU (occurrence: AU)
  Receive Date: 20140602
  Receipt Date: 20140602
  Transmission Date: 20141212
  Serious: Yes (Other)
  Sender: FDA-Public Use
  Company Number: AU-SA-2014SA067061

PATIENT
  Age: 72 Year
  Sex: Male

DRUGS (3)
  1. ASPIRIN [Concomitant]
     Indication: TRANSIENT ISCHAEMIC ATTACK
  2. CARBAMAZEPINE [Concomitant]
     Indication: BRAIN NEOPLASM
  3. IRBESARTAN [Suspect]
     Indication: HYPERTENSION
     Route: 065

REACTIONS (3)
  - Gastroenteritis eosinophilic [Recovered/Resolved]
  - Peritonitis [Recovered/Resolved]
  - Eosinophilia [Recovered/Resolved]
